FAERS Safety Report 9448904 (Version 1)
Quarter: 2013Q3

REPORT INFORMATION
  Report Type: Spontaneous
  Country: US (occurrence: US)
  Receive Date: 20130808
  Receipt Date: 20130808
  Transmission Date: 20140515
  Serious: No
  Sender: FDA-Public Use
  Company Number: US-TEVA-424129USA

PATIENT
  Age: 69 Year
  Sex: Male

DRUGS (4)
  1. AZILECT [Suspect]
     Dosage: 20 MICROGRAM DAILY;
     Route: 048
  2. AMPRYA [Suspect]
     Indication: GAIT DISTURBANCE
     Dosage: 20 MICROGRAM DAILY;
     Route: 048
     Dates: start: 20130318, end: 20130401
  3. SINEMET [Suspect]
     Indication: PARKINSON^S DISEASE
     Dosage: 25/100
     Route: 048
  4. PRIMIDONE [Suspect]
     Route: 048

REACTIONS (3)
  - Balance disorder [Recovered/Resolved]
  - Gait disturbance [Recovered/Resolved]
  - Tremor [Recovered/Resolved]
